FAERS Safety Report 7790123-1 (Version None)
Quarter: 2011Q3

REPORT INFORMATION
  Report Type: 
  Country: None (occurrence: None)
  Receive Date: 20110930
  Receipt Date: 20101027
  Transmission Date: 20111222
  Serious: No
  Sender: FDA-Public Use
  Company Number: US-ASTRAZENECA-2010SE50933

PATIENT
  Age: 57 Year
  Sex: Female

DRUGS (2)
  1. ARIMIDEX [Suspect]
     Route: 048
     Dates: start: 20090101
  2. CALCIUM CARBONATE [Concomitant]
     Indication: PROPHYLAXIS

REACTIONS (2)
  - HOT FLUSH [None]
  - GLAUCOMA [None]
